FAERS Safety Report 6491688-2 (Version None)
Quarter: 2009Q4

REPORT INFORMATION
  Report Type: 
  Country: None (occurrence: None)
  Receive Date: 20091211
  Receipt Date: 20091207
  Transmission Date: 20100525
  Serious: Yes (Life-Threatening, Hospitalization, Disabling)
  Sender: FDA-Public Use
  Company Number: AU-ROCHE-563431

PATIENT
  Sex: Female
  Weight: 63.5 kg

DRUGS (12)
  1. BEVACIZUMAB [Suspect]
     Indication: NON-SMALL CELL LUNG CANCER
     Dosage: COMPLETED FOUR CYCLES
     Route: 042
     Dates: start: 20071211
  2. APOMAB [Suspect]
     Indication: NON-SMALL CELL LUNG CANCER
     Dosage: 630 UNK, UNK
     Route: 042
     Dates: start: 20071211
  3. PACLITAXEL [Suspect]
     Indication: NON-SMALL CELL LUNG CANCER
     Dosage: 330 UNK, UNK
     Route: 042
     Dates: start: 20071211
  4. CARBOPLATIN [Suspect]
     Indication: NON-SMALL CELL LUNG CANCER
     Dosage: 615 UNK, UNK
     Route: 042
     Dates: start: 20071211
  5. DEXAMETHASONE TAB [Concomitant]
     Indication: ANTIINFLAMMATORY THERAPY
     Dates: start: 20080430
  6. CLEXANE [Concomitant]
     Indication: ANTICOAGULANT THERAPY
     Dates: start: 20080430
  7. CARBAMAZEPINE [Concomitant]
  8. FELODIPINE [Concomitant]
  9. PERINDOPRIL [Concomitant]
  10. OMEPRAZOLE [Concomitant]
  11. LEVOTHYROXINE SODIUM [Concomitant]
  12. ALBUTEROL [Concomitant]

REACTIONS (1)
  - SPINAL CORD INFARCTION [None]
